FAERS Safety Report 10448498 (Version 1)
Quarter: 2014Q3

REPORT INFORMATION
  Report Type: Report from Study
  Country: AR (occurrence: AR)
  Receive Date: 20140911
  Receipt Date: 20140911
  Transmission Date: 20150326
  Serious: Yes (Other)
  Sender: FDA-Public Use
  Company Number: PHHY2014AR117464

PATIENT
  Age: 76 Year
  Sex: Female

DRUGS (2)
  1. DIOVAN D [Suspect]
     Active Substance: HYDROCHLOROTHIAZIDE\VALSARTAN
     Dosage: 1 DF, DAILY
  2. DIOVAN [Suspect]
     Active Substance: VALSARTAN
     Dosage: 1 DF, DAILY
     Route: 048

REACTIONS (5)
  - Nasal congestion [Recovered/Resolved]
  - Rhinitis [Recovered/Resolved]
  - Arrhythmia [Unknown]
  - Oropharyngeal pain [Recovered/Resolved]
  - Cough [Recovered/Resolved]

NARRATIVE: CASE EVENT DATE: 20140801
